FAERS Safety Report 15893827 (Version 1)
Quarter: 2019Q1

REPORT INFORMATION
  Report Type: Spontaneous
  Country: US (occurrence: US)
  Receive Date: 20190131
  Receipt Date: 20190131
  Transmission Date: 20190417
  Serious: No
  Sender: FDA-Public Use
  Company Number: US-AMGEN-USASP2019009281

PATIENT
  Sex: Male

DRUGS (3)
  1. MTX [Concomitant]
     Active Substance: METHOTREXATE SODIUM
     Dosage: 25 MG, QWK
     Route: 058
  2. TOFACITINIB [Concomitant]
     Active Substance: TOFACITINIB
     Dosage: 11 MG, UNK
  3. ENBREL [Suspect]
     Active Substance: ETANERCEPT
     Indication: PRODUCT USED FOR UNKNOWN INDICATION
     Dosage: UNK
     Route: 065

REACTIONS (1)
  - Drug ineffective [Unknown]
